FAERS Safety Report 5611061-6 (Version None)
Quarter: 2008Q1

REPORT INFORMATION
  Report Type: 
  Country: None (occurrence: None)
  Receive Date: 20080201
  Receipt Date: 20080128
  Transmission Date: 20080703
  Serious: Yes (Death, Hospitalization)
  Sender: FDA-Public Use
  Company Number: DE-ASTRAZENECA-2008PK00222

PATIENT
  Age: 79 Year
  Sex: Female

DRUGS (12)
  1. SEROQUEL [Suspect]
     Route: 048
  2. OLANZAPINE [Suspect]
     Route: 048
  3. OLANZAPINE [Suspect]
     Route: 048
  4. DIAZEPAM [Suspect]
     Dosage: 5 MG TO 15 MG PER DAY
  5. PIPAMPERON [Suspect]
     Dosage: UP TO 80 MG
  6. PROTHIPENDYL [Suspect]
  7. MELPERON [Suspect]
  8. GLIMEPIRIDE [Concomitant]
  9. ASPIRIN [Concomitant]
  10. FUROSEMIDE [Concomitant]
  11. BISOPROLOL [Concomitant]
  12. LEVOTHYROXINE SODIUM [Concomitant]

REACTIONS (3)
  - CEREBRAL INFARCTION [None]
  - PNEUMONIA [None]
  - URINARY TRACT INFECTION [None]
